FAERS Safety Report 16460405 (Version 1)
Quarter: 2019Q2

REPORT INFORMATION
  Report Type: Spontaneous
  Country: FR (occurrence: FR)
  Receive Date: 20190620
  Receipt Date: 20190620
  Transmission Date: 20190711
  Serious: Yes (Hospitalization, Other)
  Sender: FDA-Public Use
  Company Number: FR-ASTRAZENECA-2019SE88322

PATIENT
  Age: 27254 Day
  Sex: Female

DRUGS (7)
  1. LYNPARZA [Suspect]
     Active Substance: OLAPARIB
     Route: 048
     Dates: start: 20190320
  2. METOCLOPRAMIDE. [Concomitant]
     Active Substance: METOCLOPRAMIDE
  3. LOPERAMIDE [Concomitant]
     Active Substance: LOPERAMIDE
  4. LYNPARZA [Suspect]
     Active Substance: OLAPARIB
     Route: 048
     Dates: start: 20190212
  5. INNOHEP [Concomitant]
     Active Substance: TINZAPARIN SODIUM
  6. LYNPARZA [Suspect]
     Active Substance: OLAPARIB
     Route: 048
     Dates: start: 20181218
  7. LYNPARZA [Suspect]
     Active Substance: OLAPARIB
     Route: 048
     Dates: start: 20190206

REACTIONS (9)
  - Intentional product misuse [Unknown]
  - Faecal vomiting [Unknown]
  - Intercepted product prescribing error [Unknown]
  - Vomiting [Unknown]
  - Weight decreased [Unknown]
  - Condition aggravated [Unknown]
  - Constipation [Unknown]
  - Treatment noncompliance [Unknown]
  - Nausea [Unknown]

NARRATIVE: CASE EVENT DATE: 20190206
